FAERS Safety Report 4634333-0 (Version None)
Quarter: 2005Q2

REPORT INFORMATION
  Report Type: 
  Country: None (occurrence: None)
  Receive Date: 20050413
  Receipt Date: 20050329
  Transmission Date: 20051028
  Serious: Yes (Other)
  Sender: FDA-Public Use
  Company Number: 106127ISR

PATIENT
  Age: 62 Year
  Sex: Female

DRUGS (1)
  1. GLATIRAMER ACETATE [Suspect]
     Indication: MULTIPLE SCLEROSIS
     Dosage: 20 MILLIGRAM SUBCUTANEOUS
     Route: 058
     Dates: start: 20020101

REACTIONS (5)
  - ANISOCYTOSIS [None]
  - BASOPHIL COUNT DECREASED [None]
  - ELLIPTOCYTOSIS [None]
  - NEUTROPENIA [None]
  - RED BLOOD CELL SEDIMENTATION RATE DECREASED [None]
